FAERS Safety Report 6603401-6 (Version None)
Quarter: 2010Q1

REPORT INFORMATION
  Report Type: 
  Country: None (occurrence: None)
  Receive Date: 20100226
  Receipt Date: 20090417
  Transmission Date: 20100710
  Serious: No
  Sender: FDA-Public Use
  Company Number: A0779405A

PATIENT
  Age: 38 Year
  Sex: Male

DRUGS (3)
  1. VALTREX [Suspect]
     Dosage: 500MG WEEKLY
     Route: 048
     Dates: start: 20040101
  2. EFFEXOR [Concomitant]
  3. LIPITOR [Concomitant]

REACTIONS (1)
  - THERAPEUTIC RESPONSE UNEXPECTED [None]
